FAERS Safety Report 15896383 (Version 3)
Quarter: 2019Q1

REPORT INFORMATION
  Report Type: Spontaneous
  Country: JP (occurrence: JP)
  Receive Date: 20190131
  Receipt Date: 20190218
  Transmission Date: 20190417
  Serious: No
  Sender: FDA-Public Use
  Company Number: JP-ROCHE-2256031

PATIENT
  Age: 44 Year
  Sex: Male

DRUGS (2)
  1. LOXONIN [Concomitant]
     Active Substance: LOXOPROFEN SODIUM
     Indication: HYPERTHERMIA
     Route: 048
  2. XOFLUZA [Suspect]
     Active Substance: BALOXAVIR MARBOXIL
     Indication: INFLUENZA
     Route: 048
     Dates: start: 20190121, end: 20190121

REACTIONS (2)
  - Abnormal behaviour [Unknown]
  - Delirium febrile [Unknown]

NARRATIVE: CASE EVENT DATE: 20190121
